FAERS Safety Report 24840142 (Version 1)
Quarter: 2025Q1

REPORT INFORMATION
  Report Type: Spontaneous
  Country: US (occurrence: None)
  Receive Date: 20250114
  Receipt Date: 20250114
  Transmission Date: 20250408
  Serious: Yes (Hospitalization)
  Sender: FDA-CTU
  Company Number: None

PATIENT
  Age: 5 Year
  Sex: Female
  Weight: 17.3 kg

DRUGS (1)
  1. CISPLATIN [Suspect]
     Active Substance: CISPLATIN

REACTIONS (5)
  - Nausea [None]
  - Weight decreased [None]
  - Vomiting [None]
  - Diarrhoea [None]
  - Influenza [None]

NARRATIVE: CASE EVENT DATE: 20250106
